FAERS Safety Report 7503895-8 (Version None)
Quarter: 2011Q2

REPORT INFORMATION
  Report Type: 
  Country: None (occurrence: None)
  Receive Date: 20110401
  Receipt Date: 20100915
  Transmission Date: 20111010
  Serious: Yes (Other)
  Sender: FDA-Public Use
  Company Number: 248673USA

PATIENT
  Age: 48 Year
  Sex: Female

DRUGS (2)
  1. ETANERCEPT [Suspect]
     Dates: start: 20071001, end: 20100701
  2. TAMOXIFEN CITRATE [Suspect]
     Dates: start: 20060801, end: 20090701

REACTIONS (1)
  - THROMBOSIS [None]
